FAERS Safety Report 7113228-7 (Version None)
Quarter: 2010Q4

REPORT INFORMATION
  Report Type: 
  Country: None (occurrence: None)
  Receive Date: 20101119
  Receipt Date: 20100222
  Transmission Date: 20110411
  Serious: No
  Sender: FDA-Public Use
  Company Number: A0839221A

PATIENT
  Sex: Female

DRUGS (1)
  1. WELLBUTRIN SR [Suspect]
     Dosage: 150MG TWICE PER DAY
     Route: 048

REACTIONS (3)
  - FATIGUE [None]
  - HEADACHE [None]
  - PRODUCT QUALITY ISSUE [None]
